FAERS Safety Report 18100795 (Version 1)
Quarter: 2020Q3

REPORT INFORMATION
  Report Type: Spontaneous
  Country: US (occurrence: US)
  Receive Date: 20200731
  Receipt Date: 20200731
  Transmission Date: 20201103
  Serious: No
  Sender: FDA-Public Use
  Company Number: US-AKRON, INC.-2088019

PATIENT
  Sex: Female

DRUGS (1)
  1. MAG?OX? 400 MAGNESIUM DIETARY SUPPLEMENT [Suspect]
     Active Substance: DIETARY SUPPLEMENT\MAGNESIUM OXIDE
     Route: 048

REACTIONS (3)
  - Blood pressure ambulatory [Recovered/Resolved]
  - Neck pain [Recovered/Resolved]
  - Headache [Recovered/Resolved]
